FAERS Safety Report 7999757-2 (Version None)
Quarter: 2011Q4

REPORT INFORMATION
  Report Type: 
  Country: None (occurrence: None)
  Receive Date: 20111221
  Receipt Date: 20111209
  Transmission Date: 20120403
  Serious: Yes (Other)
  Sender: FDA-Public Use
  Company Number: SA-MYLANLABS-2011S1025570

PATIENT
  Age: 44 Year
  Sex: Female

DRUGS (6)
  1. METFORMIN HCL [Suspect]
     Indication: DIABETES MELLITUS
     Route: 065
  2. PREDNISOLONE [Concomitant]
     Route: 065
  3. ASPIRIN [Concomitant]
     Route: 065
  4. TRAMADOL HCL [Concomitant]
     Dosage: 100MG ONCE DAILY AS REQUIRED
     Route: 065
  5. CALCIUM [Concomitant]
     Route: 065
  6. HYDROXYCHLOROQUINE SULFATE [Concomitant]
     Route: 065

REACTIONS (1)
  - HEPATOTOXICITY [None]
